FAERS Safety Report 7229109-4 (Version None)
Quarter: 2011Q1

REPORT INFORMATION
  Report Type: 
  Country: None (occurrence: None)
  Receive Date: 20110117
  Receipt Date: 20110105
  Transmission Date: 20110831
  Serious: Yes (Hospitalization, Other)
  Sender: FDA-Public Use
  Company Number: US-CELGENEUS-163-20785-10112529

PATIENT
  Sex: Male
  Weight: 73.548 kg

DRUGS (30)
  1. THALOMID [Suspect]
     Dosage: 150-100MG
     Route: 048
     Dates: start: 20070701, end: 20090101
  2. THALOMID [Suspect]
     Route: 048
     Dates: start: 20090507, end: 20090101
  3. THALOMID [Suspect]
     Route: 048
     Dates: start: 20100101
  4. FOLIC ACID [Concomitant]
     Route: 048
  5. NOVOLOG [Concomitant]
     Route: 065
  6. TYLENOL [Concomitant]
     Route: 065
  7. FERROUS SULFATE [Concomitant]
     Route: 065
  8. LOVAZA [Concomitant]
     Route: 065
  9. LEVOPHED [Concomitant]
     Route: 065
  10. ATENOLOL [Concomitant]
     Route: 065
  11. NORVASC [Concomitant]
     Indication: HYPERTENSION
     Route: 065
  12. LISINOPRIL [Concomitant]
     Indication: HYPERTENSION
     Route: 065
  13. THALOMID [Suspect]
     Route: 048
     Dates: start: 20070601, end: 20070101
  14. METAMUCIL-2 [Concomitant]
     Dosage: 1 SCOOP
     Route: 065
  15. VITAMIN K TAB [Concomitant]
     Indication: HYPERCOAGULATION
     Route: 065
     Dates: start: 20101001
  16. VANCOMYCIN [Concomitant]
     Indication: URINARY TRACT INFECTION
     Route: 065
     Dates: start: 20101101
  17. LANOXIN [Concomitant]
     Route: 065
  18. ALLOPURINOL [Concomitant]
     Dosage: 100-300MG
     Route: 065
  19. DIGOXIN [Concomitant]
     Route: 065
  20. CELEXA [Concomitant]
     Route: 065
  21. COUMADIN [Concomitant]
     Route: 065
  22. GLIPIZIDE [Concomitant]
     Route: 065
  23. AVODART [Concomitant]
     Route: 065
  24. THALOMID [Suspect]
     Dosage: 200-100MG
     Route: 048
     Dates: start: 20090701, end: 20090101
  25. THALOMID [Suspect]
     Route: 048
     Dates: start: 20091201
  26. NEXIUM [Concomitant]
     Route: 065
  27. TRICOR [Concomitant]
     Route: 065
  28. DEXTROSE 5% [Concomitant]
     Indication: DEHYDRATION
     Route: 051
     Dates: start: 20101001
  29. LANTUS [Concomitant]
     Dosage: 5 UNITS
     Route: 065
  30. FLOMAX [Concomitant]
     Route: 065

REACTIONS (9)
  - HYPOGLYCAEMIA [None]
  - ISCHAEMIC STROKE [None]
  - BLOOD GLUCOSE INCREASED [None]
  - URINARY TRACT INFECTION STAPHYLOCOCCAL [None]
  - HYPOTENSION [None]
  - RESPIRATORY DISTRESS [None]
  - HAEMATURIA [None]
  - PNEUMONIA BACTERIAL [None]
  - HYPERNATRAEMIA [None]
